FAERS Safety Report 5662832-1 (Version None)
Quarter: 2008Q1

REPORT INFORMATION
  Report Type: 
  Country: None (occurrence: None)
  Receive Date: 20080307
  Receipt Date: 20080222
  Transmission Date: 20080703
  Serious: Yes (Other)
  Sender: FDA-Public Use
  Company Number: 1-15817845

PATIENT
  Age: 54 Year
  Sex: Female
  Weight: 82.5547 kg

DRUGS (15)
  1. FENTANYL [Suspect]
     Indication: PAIN
     Dosage: 50 MCG/HR EVERY 72 HR, TRANSDERMAL
     Route: 062
     Dates: start: 20071201
  2. XANAX (ALPRAZOLAM) XR 0.5 MG [Concomitant]
  3. ELAVIL (AMITRIPTYLINE) 75 MG [Concomitant]
  4. CYCLOBENZAPRINE [Concomitant]
  5. GABAPENTIN [Concomitant]
  6. PREMARIN (CONJUGATED ESTROGENS) 1 MG [Concomitant]
  7. IRON 65 MG [Concomitant]
  8. MAG-OX (MAGNESIUM OXIDE) [Concomitant]
  9. PREVACID (LANSOPRAZOLE) 60 MG [Concomitant]
  10. REQUIP (ROPINIROLE HYDROCHLORIDE) 2 MG [Concomitant]
  11. ZYPREXA [Concomitant]
  12. ASPIRIN (ACETYLSALICYLIC ACID) 81 MG [Concomitant]
  13. UNSPECIFIED EYE DROPS [Concomitant]
  14. VITAMIN E SUPPLEMENT [Concomitant]
  15. VITAMIN C SUPPLEMENT [Concomitant]

REACTIONS (15)
  - APPLICATION SITE REACTION [None]
  - BLOOD PRESSURE DECREASED [None]
  - CHOKING [None]
  - CONVULSION [None]
  - DIZZINESS [None]
  - DYSPHAGIA [None]
  - DYSPNOEA [None]
  - FEELING ABNORMAL [None]
  - LOSS OF CONSCIOUSNESS [None]
  - NAUSEA [None]
  - OVERDOSE [None]
  - PHARMACEUTICAL PRODUCT COMPLAINT [None]
  - SKIN LESION [None]
  - SOMNOLENCE [None]
  - VOMITING [None]
